FAERS Safety Report 8549865-2 (Version None)
Quarter: 2012Q3

REPORT INFORMATION
  Report Type: 
  Country: None (occurrence: None)
  Receive Date: 20120730
  Receipt Date: 20110901
  Transmission Date: 20120928
  Serious: No
  Sender: FDA-Public Use
  Company Number: US-GLAXOSMITHKLINE-A0945156A

PATIENT
  Sex: Male

DRUGS (7)
  1. BETA BLOCKER [Concomitant]
  2. WARFARIN SODIUM [Concomitant]
  3. LASIX [Concomitant]
  4. PROAIR HFA [Concomitant]
  5. BENICAR [Concomitant]
  6. POTASSIUM CHLORIDE [Concomitant]
  7. IMITREX [Suspect]
     Indication: CLUSTER HEADACHE
     Dosage: 100MG TWICE PER DAY
     Route: 048

REACTIONS (3)
  - DRUG INEFFECTIVE [None]
  - DRUG PRESCRIBING ERROR [None]
  - DRUG ADMINISTRATION ERROR [None]
